FAERS Safety Report 8792807 (Version 1)
Quarter: 2012Q4

REPORT INFORMATION
  Report Type: 
  Country: US (occurrence: US)
  Receive Date: 20120918
  Receipt Date: 20120918
  Transmission Date: 20130627
  Serious: Yes (Other)
  Sender: FDA-Public Use
  Company Number: US-PFIZER INC-2012228416

PATIENT
  Age: 56 Year
  Sex: Female

DRUGS (3)
  1. LYRICA [Suspect]
     Indication: OSTEOARTHRITIS
     Dosage: 25 mg, 3x/day
     Dates: start: 2010, end: 201102
  2. LYRICA [Suspect]
     Dosage: 75 mg, 3x/day
     Dates: start: 201102, end: 2011
  3. LEVOTHYROXINE [Concomitant]
     Indication: HYPOTHYROIDISM
     Dosage: 100 ug, daily

REACTIONS (7)
  - Blood iron decreased [Unknown]
  - Impaired driving ability [Unknown]
  - Joint range of motion decreased [Unknown]
  - Drug ineffective [Unknown]
  - Swollen tongue [Not Recovered/Not Resolved]
  - Dizziness [Unknown]
  - Fatigue [Unknown]
